FAERS Safety Report 13535432 (Version 1)
Quarter: 2017Q2

REPORT INFORMATION
  Report Type: Spontaneous
  Country: DE (occurrence: DE)
  Receive Date: 20170511
  Receipt Date: 20170511
  Transmission Date: 20170830
  Serious: Yes (Congenital Anomaly)
  Sender: FDA-Public Use
  Company Number: DE-SUN PHARMACEUTICAL INDUSTRIES LTD-2017R1-140212

PATIENT
  Age: 1 Day
  Sex: Male
  Weight: 3.94 kg

DRUGS (3)
  1. LACHGAS [Concomitant]
     Indication: ANAESTHESIA PROCEDURE
     Dosage: UNK
     Route: 064
     Dates: start: 20161109, end: 20161109
  2. PARACETAMOL [Suspect]
     Active Substance: ACETAMINOPHEN
     Indication: HERPES ZOSTER
     Dosage: 3000 [MG/D ]/MAIMUM DOSAGE 3X1000MG DAILY
     Route: 064
     Dates: start: 20160807, end: 20160829
  3. METAFOLIN [Concomitant]
     Indication: PROPHYLAXIS OF NEURAL TUBE DEFECT
     Dosage: UNK
     Route: 064
     Dates: start: 20160315, end: 20161109

REACTIONS (1)
  - Cryptorchism [Not Recovered/Not Resolved]

NARRATIVE: CASE EVENT DATE: 20161109
